FAERS Safety Report 4690436-6 (Version None)
Quarter: 2005Q2

REPORT INFORMATION
  Report Type: 
  Country: None (occurrence: None)
  Receive Date: 20050615
  Receipt Date: 20050601
  Transmission Date: 20051028
  Serious: Yes (Life-Threatening, Hospitalization)
  Sender: FDA-Public Use
  Company Number: HK-JNJFOC-20050601805

PATIENT
  Age: 50 Year
  Sex: Male

DRUGS (6)
  1. PARACETAMOL [Suspect]
  2. PARACETAMOL [Suspect]
     Indication: UPPER RESPIRATORY TRACT INFECTION
  3. AMOXICILLIN AND CLAVULANATE POTASSIUM [Suspect]
  4. AMOXICILLIN AND CLAVULANATE POTASSIUM [Suspect]
     Indication: UPPER RESPIRATORY TRACT INFECTION
  5. DICLOFENAC [Suspect]
     Indication: UPPER RESPIRATORY TRACT INFECTION
  6. MEFENAMIC ACID [Suspect]
     Indication: UPPER RESPIRATORY TRACT INFECTION

REACTIONS (4)
  - ACUTE RESPIRATORY DISTRESS SYNDROME [None]
  - NOSOCOMIAL INFECTION [None]
  - PANCYTOPENIA [None]
  - TOXIC EPIDERMAL NECROLYSIS [None]
